FAERS Safety Report 23997141 (Version 1)
Quarter: 2024Q2

REPORT INFORMATION
  Report Type: Spontaneous
  Country: DE (occurrence: DE)
  Receive Date: 20240621
  Receipt Date: 20240621
  Transmission Date: 20240716
  Serious: Yes (Other)
  Sender: FDA-Public Use
  Company Number: DE-NOVOPROD-1241709

PATIENT
  Age: 552 Month
  Sex: Male
  Weight: 85 kg

DRUGS (1)
  1. SOGROYA [Suspect]
     Active Substance: SOMAPACITAN-BECO
     Indication: Growth hormone deficiency
     Dosage: 2 MG, QW
     Route: 058

REACTIONS (2)
  - Circulatory collapse [Recovered/Resolved]
  - Gastrointestinal infection [Recovered/Resolved]

NARRATIVE: CASE EVENT DATE: 20240201
